FAERS Safety Report 16430696 (Version 1)
Quarter: 2019Q2

REPORT INFORMATION
  Report Type: Report from Study
  Country: BR (occurrence: BR)
  Receive Date: 20190614
  Receipt Date: 20190614
  Transmission Date: 20190711
  Serious: Yes (Other)
  Sender: FDA-Public Use
  Company Number: PHHY2018BR076412

PATIENT
  Sex: Female
  Weight: 80 kg

DRUGS (1)
  1. COSENTYX [Suspect]
     Active Substance: SECUKINUMAB
     Indication: PSORIATIC ARTHROPATHY
     Dosage: 300 MG, UNK
     Route: 058
     Dates: start: 20170314, end: 20180204

REACTIONS (3)
  - Breast cancer [Unknown]
  - Psoriatic arthropathy [Unknown]
  - Drug ineffective [Unknown]
